FAERS Safety Report 7901564-3 (Version None)
Quarter: 2011Q4

REPORT INFORMATION
  Report Type: 
  Country: None (occurrence: None)
  Receive Date: 20111108
  Receipt Date: 20111017
  Transmission Date: 20120403
  Serious: Yes (Other)
  Sender: FDA-Public Use
  Company Number: CA-JNJFOC-20111010475

PATIENT
  Sex: Female
  Weight: 62 kg

DRUGS (13)
  1. PANTOPRAZOLE [Concomitant]
  2. REMICADE [Suspect]
     Route: 042
  3. REMICADE [Suspect]
     Route: 042
  4. REMICADE [Suspect]
     Indication: COLITIS ULCERATIVE
     Route: 042
     Dates: start: 20111017, end: 20111017
  5. CALCIUM [Concomitant]
  6. CHOLESTYRAMINE [Concomitant]
  7. REMICADE [Suspect]
     Route: 042
     Dates: start: 20090102, end: 20111017
  8. RANITIDINE [Concomitant]
  9. HYDROCHLOROTHIAZIDE [Concomitant]
  10. DESLORATADINE [Concomitant]
     Dates: end: 20111001
  11. REMICADE [Suspect]
     Indication: CROHN'S DISEASE
     Route: 042
     Dates: start: 20111017, end: 20111017
  12. REMICADE [Suspect]
     Route: 042
     Dates: start: 20090102, end: 20111017
  13. VITAMIN D [Concomitant]

REACTIONS (7)
  - SINUS CONGESTION [None]
  - INFUSION RELATED REACTION [None]
  - CHOKING SENSATION [None]
  - SENSATION OF FOREIGN BODY [None]
  - ANXIETY [None]
  - NASAL CONGESTION [None]
  - RHINORRHOEA [None]
